FAERS Safety Report 21102887 (Version 1)
Quarter: 2022Q3

REPORT INFORMATION
  Report Type: Spontaneous
  Country: None (occurrence: CN)
  Receive Date: 20220720
  Receipt Date: 20220720
  Transmission Date: 20221027
  Serious: Yes (Hospitalization)
  Sender: FDA-Public Use
  Company Number: CN-Jiangsu Hengrui Medicine Co., Ltd.-2131037

PATIENT
  Age: 56 Year
  Sex: Male
  Weight: 77 kg

DRUGS (3)
  1. OXALIPLATIN [Suspect]
     Active Substance: OXALIPLATIN
     Indication: Pancreatic neoplasm
     Route: 041
     Dates: start: 20220614, end: 20220614
  2. SINTILIMAB [Suspect]
     Active Substance: SINTILIMAB
     Route: 041
     Dates: start: 20220614, end: 20220614
  3. GEMCITABINE [Suspect]
     Active Substance: GEMCITABINE
     Route: 041
     Dates: start: 20220614, end: 20220614

REACTIONS (1)
  - Drug-induced liver injury [Unknown]

NARRATIVE: CASE EVENT DATE: 20220619
